FAERS Safety Report 4581154-3 (Version None)
Quarter: 2005Q1

REPORT INFORMATION
  Report Type: 
  Country: None (occurrence: None)
  Receive Date: 20050214
  Receipt Date: 20040817
  Transmission Date: 20050727
  Serious: No
  Sender: FDA-Public Use
  Company Number: US-GLAXOSMITHKLINE-A0522466A

PATIENT
  Sex: Male

DRUGS (2)
  1. LAMICTAL [Suspect]
     Dosage: 250MG VARIABLE DOSE
     Route: 048
  2. STRATTERA [Concomitant]

REACTIONS (5)
  - BLOOD FOLLICLE STIMULATING HORMONE DECREASED [None]
  - BLOOD GROWTH HORMONE DECREASED [None]
  - BLOOD LUTEINISING HORMONE DECREASED [None]
  - BLOOD TESTOSTERONE DECREASED [None]
  - HYPOPITUITARISM [None]
